FAERS Safety Report 6278662 (Version 3)
Quarter: 2013Q2

REPORT INFORMATION
  Report Type: Spontaneous
  Country: US (occurrence: US)
  Receive Date: 20060817
  Receipt Date: 20130529
  Transmission Date: 20140414
  Serious: Yes (Other)
  Sender: FDA-Public Use
  Company Number: US-PFIZER INC-2006097483

PATIENT
  Sex: Female

DRUGS (17)
  1. IBUPROFEN [Suspect]
     Indication: SWELLING
     Dosage: 800 MG, 2X/DAY
     Dates: start: 2006
  2. IBUPROFEN [Interacting]
     Indication: FIBROMYALGIA
  3. CHANTIX [Interacting]
     Indication: SMOKING CESSATION THERAPY
     Dosage: 0.5 MG, 2X/DAY
     Route: 048
     Dates: start: 20060714
  4. CHANTIX [Interacting]
     Dosage: 1 MG, 1X/DAY
     Route: 048
     Dates: start: 200607
  5. CHANTIX [Interacting]
     Dosage: 1 MG, 2X/DAY
     Route: 048
     Dates: start: 200607
  6. PREDNISONE [Suspect]
     Indication: VIRAL INFECTION
     Dates: start: 200611
  7. PROVIGIL [Interacting]
     Indication: NARCOLEPSY
     Route: 065
     Dates: start: 20060705
  8. NORCO [Interacting]
     Indication: NECK PAIN
  9. CORRECTOL ^ALCON^ [Concomitant]
     Dosage: UNK
  10. PROCARDIA XL [Concomitant]
     Dosage: 60 MG, UNK
  11. PROTONIX [Concomitant]
     Dosage: UNK
  12. LASIX [Concomitant]
     Dosage: EVERY OTHER DAY
  13. POTASSIUM [Concomitant]
     Dosage: UNK
  14. MECLIZINE [Concomitant]
     Dosage: UNK
  15. DIOVAN ^NOVARTIS^ [Concomitant]
     Dosage: UNK
  16. AMBIEN [Concomitant]
     Dosage: AT BEDTIME
  17. ATENOLOL [Concomitant]
     Indication: HEART RATE
     Dosage: UNK

REACTIONS (9)
  - Narcolepsy [Unknown]
  - White blood cell count increased [Recovered/Resolved]
  - Full blood count abnormal [Unknown]
  - Blood pressure increased [Recovered/Resolved]
  - Heart rate abnormal [Unknown]
  - Drug interaction [Unknown]
  - Viral infection [Recovered/Resolved]
  - Constipation [Not Recovered/Not Resolved]
  - Flatulence [Not Recovered/Not Resolved]
